FAERS Safety Report 8234415 (Version 2)
Quarter: 2012Q4

REPORT INFORMATION
  Report Type: 
  Country: US (occurrence: US)
  Receive Date: 20111107
  Receipt Date: 20121107
  Transmission Date: 20130627
  Serious: Yes (Hospitalization)
  Sender: FDA-Public Use
  Company Number: US-AMGEN-USASP2011048365

PATIENT
  Age: 52 Year
  Sex: Male
  Weight: 69.2 kg

DRUGS (10)
  1. ENBREL [Suspect]
     Indication: ANKYLOSING SPONDYLITIS
     Dosage: 50 mg, qwk
     Dates: start: 2004
  2. ENBREL [Suspect]
     Indication: PSORIASIS
  3. OXYCODONE / ACETAMINOPHEN [Concomitant]
     Dosage: UNK UNK, q6h
     Route: 048
     Dates: start: 20100408
  4. ADVAIR HFA [Concomitant]
     Dosage: UNK UNK, bid
  5. MOBIC [Concomitant]
     Dosage: 15 mg, qd
     Route: 048
     Dates: start: 20100208
  6. CLOBETASOL PROPIONATE E [Concomitant]
     Dosage: UNK UNK, prn
     Route: 061
     Dates: start: 20100203
  7. SPIRIVA HANDIHALER [Concomitant]
     Dosage: 18 mug, qd
  8. MTV [Concomitant]
     Dosage: UNK
     Dates: end: 20100503
  9. SINGULAIR [Concomitant]
     Dosage: 10 mg, qd
     Route: 048
  10. PROVENTIL HFA                      /00139501/ [Concomitant]
     Dosage: UNK UNK, prn

REACTIONS (9)
  - Pseudomonas infection [Unknown]
  - Sinusitis [Unknown]
  - Ankylosing spondylitis [Not Recovered/Not Resolved]
  - Musculoskeletal stiffness [Unknown]
  - Fatigue [Unknown]
  - Dry eye [Unknown]
  - Ocular hyperaemia [Unknown]
  - Neck pain [Unknown]
  - Arthralgia [Unknown]
